FAERS Safety Report 5208057-5 (Version None)
Quarter: 2007Q1

REPORT INFORMATION
  Report Type: 
  Country: None (occurrence: None)
  Receive Date: 20070110
  Receipt Date: 20061228
  Transmission Date: 20070707
  Serious: Yes (Hospitalization, Other)
  Sender: FDA-Public Use
  Company Number: 2006SP009041

PATIENT
  Age: 75 Year
  Sex: Male

DRUGS (4)
  1. POSACONAZOLE [Suspect]
     Indication: DRUG USE FOR UNKNOWN INDICATION
     Dosage: 300 MG, QD; IV
     Route: 042
     Dates: start: 20061206, end: 20061224
  2. METOPROLOL SUCCINATE [Concomitant]
  3. POTASSIUM CHLORIDE [Concomitant]
  4. RAMIPRIL [Concomitant]

REACTIONS (2)
  - ABDOMINAL PAIN [None]
  - CARDIAC FAILURE [None]
